FAERS Safety Report 6604098-1 (Version None)
Quarter: 2010Q1

REPORT INFORMATION
  Report Type: 
  Country: None (occurrence: None)
  Receive Date: 20100226
  Receipt Date: 20090710
  Transmission Date: 20100710
  Serious: No
  Sender: FDA-Public Use
  Company Number: A0785379A

PATIENT
  Sex: Female

DRUGS (2)
  1. LAMICTAL CD [Suspect]
     Indication: BIPOLAR DISORDER
     Dosage: 500MG PER DAY
     Route: 048
     Dates: start: 20080417, end: 20080516
  2. ORAL CONTRACEPTIVES [Suspect]
     Indication: CONTRACEPTION
     Route: 048
     Dates: start: 20081101

REACTIONS (3)
  - DELIVERY [None]
  - DRUG EXPOSURE DURING PREGNANCY [None]
  - MENSTRUATION IRREGULAR [None]
